FAERS Safety Report 8442040-1 (Version None)
Quarter: 2012Q2

REPORT INFORMATION
  Report Type: 
  Country: None (occurrence: None)
  Receive Date: 20120615
  Receipt Date: 20120607
  Transmission Date: 20120825
  Serious: Yes (Hospitalization)
  Sender: FDA-Public Use
  Company Number: US-BAYER-2012-021774

PATIENT
  Age: 41 Year
  Sex: Female
  Weight: 50.794 kg

DRUGS (12)
  1. NAPROXEN [Concomitant]
     Dosage: 500 MG, UNK
     Dates: start: 20070615
  2. IBUPROFEN [Concomitant]
     Dosage: UNK UNK, PRN
     Route: 048
     Dates: start: 20070727
  3. ANTIBIOTICS [Concomitant]
  4. YAZ [Suspect]
     Indication: PREMENSTRUAL SYNDROME
  5. OMNICEF [Concomitant]
     Dosage: UNK
     Route: 048
     Dates: start: 20070403
  6. YAZ [Suspect]
     Indication: POLYCYSTIC OVARIES
  7. YAZ [Suspect]
  8. SUDA-VENT [Concomitant]
     Dosage: UNK
     Route: 048
     Dates: start: 20070403
  9. ACETAMINOPHEN [Concomitant]
     Dosage: 1000 MG, BID
  10. NAPROXEN [Concomitant]
     Dosage: UNK
     Dates: start: 20070727
  11. YAZ [Suspect]
     Indication: MENSTRUAL CYCLE MANAGEMENT
     Dosage: UNK
     Dates: start: 20070101, end: 20070727
  12. NSAID'S [Concomitant]

REACTIONS (12)
  - MENTAL DISORDER [None]
  - CHEST DISCOMFORT [None]
  - PAIN [None]
  - DYSPNOEA [None]
  - DEEP VEIN THROMBOSIS [None]
  - DEPRESSION [None]
  - PULMONARY EMBOLISM [None]
  - CHEST PAIN [None]
  - PAIN IN EXTREMITY [None]
  - EMOTIONAL DISTRESS [None]
  - ANXIETY [None]
  - GENERAL PHYSICAL HEALTH DETERIORATION [None]
